FAERS Safety Report 6748126-1 (Version None)
Quarter: 2010Q2

REPORT INFORMATION
  Report Type: 
  Country: None (occurrence: None)
  Receive Date: 20100531
  Receipt Date: 20100527
  Transmission Date: 20101027
  Serious: Yes (Hospitalization, Other)
  Sender: FDA-Public Use
  Company Number: ES-BRISTOL-MYERS SQUIBB COMPANY-15122625

PATIENT
  Age: 22 Year
  Sex: Female

DRUGS (6)
  1. REYATAZ [Suspect]
     Indication: HIV INFECTION
     Route: 048
     Dates: start: 20091120, end: 20100318
  2. TRUVADA [Suspect]
     Indication: HIV INFECTION
     Dosage: STRENGTH 200MG/245MG.
     Route: 048
     Dates: start: 20091120, end: 20100318
  3. HIDROSALURETIL [Suspect]
     Route: 048
     Dates: start: 20091120, end: 20100318
  4. DARAPRIM [Suspect]
     Route: 048
     Dates: start: 20091120, end: 20100318
  5. SULFADIAZINE [Suspect]
     Indication: CEREBRAL TOXOPLASMOSIS
     Route: 048
     Dates: start: 20091120, end: 20100318
  6. DEXAMETHASONE [Suspect]
     Route: 065
     Dates: start: 20091120, end: 20100318

REACTIONS (3)
  - CALCULUS URINARY [None]
  - RENAL FAILURE CHRONIC [None]
  - TUBULOINTERSTITIAL NEPHRITIS [None]
